FAERS Safety Report 4499120-5 (Version None)
Quarter: 2004Q4

REPORT INFORMATION
  Report Type: 
  Country: None (occurrence: None)
  Receive Date: 20041111
  Receipt Date: 20041102
  Transmission Date: 20050328
  Serious: Yes (Hospitalization, Other)
  Sender: FDA-Public Use
  Company Number: US-JNJFOC-20041101316

PATIENT
  Age: 16 Year
  Sex: Female

DRUGS (1)
  1. CONCERTA [Suspect]
     Indication: DRUG USE FOR UNKNOWN INDICATION
     Dosage: TOOK THREE DOSES (UNSPECIFIED)
     Route: 049
     Dates: start: 20041027

REACTIONS (4)
  - HEART RATE INCREASED [None]
  - INTENTIONAL MISUSE [None]
  - OVERDOSE [None]
  - SELF-MEDICATION [None]
